FAERS Safety Report 6275361-1 (Version None)
Quarter: 2009Q3

REPORT INFORMATION
  Report Type: 
  Country: None (occurrence: None)
  Receive Date: 20090721
  Receipt Date: 20090708
  Transmission Date: 20100115
  Serious: Yes (Hospitalization)
  Sender: FDA-Public Use
  Company Number: CH-GENENTECH-286862

PATIENT
  Age: 69 Year
  Sex: Female

DRUGS (1)
  1. MABTHERA [Suspect]
     Indication: POLYARTHRITIS
     Dosage: 1000 MG, QD
     Route: 051
     Dates: start: 20090615, end: 20090615

REACTIONS (1)
  - CEREBROVASCULAR ACCIDENT [None]
